FAERS Safety Report 16657375 (Version 3)
Quarter: 2019Q3

REPORT INFORMATION
  Report Type: Spontaneous
  Country: US (occurrence: US)
  Receive Date: 20190801
  Receipt Date: 20190830
  Transmission Date: 20191004
  Serious: No
  Sender: FDA-Public Use
  Company Number: US-SA-2019SA205077

PATIENT
  Age: 54 Year
  Sex: Male

DRUGS (3)
  1. ADMELOG [Suspect]
     Active Substance: INSULIN LISPRO
     Indication: TYPE 2 DIABETES MELLITUS
     Dosage: 10BID,12NOC, TID
     Route: 065
     Dates: start: 20190708
  2. MOX [AMOXICILLIN SODIUM] [Suspect]
     Active Substance: AMOXICILLIN SODIUM
     Dosage: 50 U, QD
     Route: 065
  3. JANUMET XR [Concomitant]
     Active Substance: METFORMIN HYDROCHLORIDE\SITAGLIPTIN PHOSPHATE
     Dosage: UNK UNK, BID
     Route: 065
     Dates: start: 20180717

REACTIONS (1)
  - Product contamination with body fluid [Unknown]

NARRATIVE: CASE EVENT DATE: 20190724
